FAERS Safety Report 15917551 (Version 1)
Quarter: 2019Q1

REPORT INFORMATION
  Report Type: Spontaneous
  Country: US (occurrence: US)
  Receive Date: 20190205
  Receipt Date: 20190205
  Transmission Date: 20190417
  Serious: Yes (Other)
  Sender: FDA-Public Use
  Company Number: US-AUROBINDO-AUR-APL-2019-004859

PATIENT

DRUGS (1)
  1. DIVALPROEX [Suspect]
     Active Substance: DIVALPROEX SODIUM
     Indication: SEIZURE
     Dosage: UNK
     Route: 065

REACTIONS (9)
  - Drug interaction [Unknown]
  - Toxic leukoencephalopathy [Unknown]
  - Hyperreflexia [Unknown]
  - Mutism [Unknown]
  - Cogwheel rigidity [Unknown]
  - Hypertonia [Unknown]
  - Extrapyramidal disorder [Unknown]
  - Speech disorder [Unknown]
  - Mental status changes [Unknown]
